FAERS Safety Report 11691178 (Version 1)
Quarter: 2015Q4

REPORT INFORMATION
  Report Type: Spontaneous
  Country: US (occurrence: US)
  Receive Date: 20151102
  Receipt Date: 20151102
  Transmission Date: 20160304
  Serious: Yes (Other)
  Sender: FDA-Public Use
  Company Number: US-CELGENE-163-22393-13071209

PATIENT

DRUGS (2)
  1. ERLOTINIB [Suspect]
     Active Substance: ERLOTINIB
     Indication: NON-SMALL CELL LUNG CANCER
     Dosage: 150 MILLIGRAM
     Route: 048
  2. ISTODAX [Suspect]
     Active Substance: ROMIDEPSIN
     Indication: NON-SMALL CELL LUNG CANCER
     Dosage: 8-10MG/M2
     Route: 041

REACTIONS (17)
  - Vomiting [Unknown]
  - Myocardial necrosis marker increased [Unknown]
  - Anaemia [Unknown]
  - Blood potassium decreased [Unknown]
  - Dyspepsia [Unknown]
  - Radiation necrosis [Unknown]
  - Sinus tachycardia [Unknown]
  - Rash [Unknown]
  - Oral mucosal blistering [Unknown]
  - Blood glucose increased [Unknown]
  - Weight decreased [Unknown]
  - Dry skin [Unknown]
  - Non-small cell lung cancer [Unknown]
  - Decreased appetite [Unknown]
  - Diarrhoea [Unknown]
  - Fatigue [Unknown]
  - Nausea [Unknown]
